FAERS Safety Report 24019260 (Version 2)
Quarter: 2024Q3

REPORT INFORMATION
  Report Type: Spontaneous
  Country: CA (occurrence: CA)
  Receive Date: 20240627
  Receipt Date: 20240905
  Transmission Date: 20241016
  Serious: Yes (Death)
  Sender: REGENERON
  Company Number: CA-BAYER-2024A081604

PATIENT
  Sex: Female

DRUGS (3)
  1. EYLEA [Suspect]
     Active Substance: AFLIBERCEPT
     Indication: Neovascular age-related macular degeneration
     Dosage: UNK; 40 MG/ML
     Dates: start: 20230717
  2. EYLEA [Suspect]
     Active Substance: AFLIBERCEPT
     Indication: Age-related macular degeneration
     Dosage: UNK; 40 MG/ML
     Dates: start: 20230719
  3. EYLEA [Suspect]
     Active Substance: AFLIBERCEPT
     Dosage: UNK; 40 MG/ML
     Dates: start: 20240314

REACTIONS (1)
  - Death [Fatal]
